FAERS Safety Report 7958064-4 (Version None)
Quarter: 2011Q4

REPORT INFORMATION
  Report Type: 
  Country: None (occurrence: None)
  Receive Date: 20111201
  Receipt Date: 20111115
  Transmission Date: 20120403
  Serious: Yes (Other)
  Sender: FDA-Public Use
  Company Number: 2011MA016722

PATIENT
  Sex: Male

DRUGS (5)
  1. VENLAFAXINE HYDROCHLORIDE [Suspect]
     Indication: ANXIETY
     Dosage: 150 MG; PO
     Route: 048
  2. VENLAFAXINE HYDROCHLORIDE [Suspect]
     Indication: DEPRESSION
     Dosage: 150 MG; PO
     Route: 048
  3. CREON [Concomitant]
  4. ENTOCORT EC [Concomitant]
  5. PANCREATIN TRIPLE STRENGTH CAP [Concomitant]

REACTIONS (1)
  - COLITIS MICROSCOPIC [None]
